FAERS Safety Report 4805212-0 (Version None)
Quarter: 2005Q4

REPORT INFORMATION
  Report Type: 
  Country: None (occurrence: None)
  Receive Date: 20051017
  Receipt Date: 20051004
  Transmission Date: 20060501
  Serious: Yes (Other)
  Sender: FDA-Public Use
  Company Number: 2005138821

PATIENT
  Age: 37 Year
  Sex: Female
  Weight: 56.6996 kg

DRUGS (2)
  1. COOL MINT LISTERINE (MENTHOL, METHYL SALICYLATE, EUCALYPTOL, THYMOL) [Suspect]
     Indication: DENTAL DISORDER PROPHYLAXIS
     Dosage: ONE MOUTHFUL TWICE DAILY, ORAL TOPICAL
     Route: 048
     Dates: end: 20051002
  2. ANTIINFLAMMATORY/-ANTIRHEUMATIC PRODUCTS (ANTIINFLAMMATORY/ANTIRHEUMAT [Concomitant]

REACTIONS (4)
  - DIFFICULTY IN WALKING [None]
  - GASTRIC INFECTION [None]
  - PAIN [None]
  - ULCER [None]
